FAERS Safety Report 8995736 (Version 1)
Quarter: 2013Q1

REPORT INFORMATION
  Report Type: Spontaneous
  Country: US (occurrence: US)
  Receive Date: 20130103
  Receipt Date: 20130103
  Transmission Date: 20140127
  Serious: No
  Sender: FDA-Public Use
  Company Number: US-ABBOTT-12P-163-0967420-00

PATIENT
  Age: 70 Year
  Sex: Female
  Weight: 86.26 kg

DRUGS (3)
  1. SYNTHROID [Suspect]
     Indication: THYROIDECTOMY
     Dates: start: 201206
  2. SYNTHROID [Suspect]
     Dates: end: 201206
  3. SYNTHROID [Suspect]
     Dates: start: 20120320

REACTIONS (5)
  - Product quality issue [Unknown]
  - Fatigue [Unknown]
  - Lethargy [Unknown]
  - Pain [Unknown]
  - Thyroid function test abnormal [Unknown]
